FAERS Safety Report 8529992-6 (Version None)
Quarter: 2012Q3

REPORT INFORMATION
  Report Type: 
  Country: None (occurrence: None)
  Receive Date: 20120723
  Receipt Date: 20120228
  Transmission Date: 20120928
  Serious: No
  Sender: FDA-Public Use
  Company Number: US-GLAXOSMITHKLINE-A0968650A

PATIENT
  Age: 77 Year
  Sex: Female

DRUGS (2)
  1. TRIAMTERENE AND HYDROCHLOROTHIAZIDE [Suspect]
     Indication: HYPERTENSION
     Dates: start: 20080101
  2. LISINOPRIL [Suspect]
     Indication: HYPERTENSION
     Dates: start: 20080101

REACTIONS (1)
  - DRUG INEFFECTIVE [None]
